FAERS Safety Report 5510675-1 (Version None)
Quarter: 2007Q4

REPORT INFORMATION
  Report Type: 
  Country: None (occurrence: None)
  Receive Date: 20071108
  Receipt Date: 20071102
  Transmission Date: 20080405
  Serious: Yes (Other)
  Sender: FDA-Public Use
  Company Number: B0493759A

PATIENT
  Age: 40 Year
  Sex: Female

DRUGS (4)
  1. NIQUITIN [Suspect]
     Indication: SMOKING CESSATION THERAPY
     Dosage: 21MG PER DAY
     Route: 062
     Dates: start: 20060109, end: 20060111
  2. GABAPENTIN [Concomitant]
     Route: 048
  3. SERETIDE [Concomitant]
     Indication: ASTHMA
     Route: 048
  4. EVOREL [Concomitant]
     Indication: HORMONE REPLACEMENT THERAPY
     Route: 062

REACTIONS (3)
  - APPLICATION SITE PAIN [None]
  - APPLICATION SITE PRURITUS [None]
  - VOMITING [None]
